FAERS Safety Report 10258161 (Version 1)
Quarter: 2014Q2

REPORT INFORMATION
  Report Type: Spontaneous
  Country: US (occurrence: None)
  Receive Date: 20140623
  Receipt Date: 20140623
  Transmission Date: 20141212
  Serious: Yes (Disabling)
  Sender: FDA-Public Use
  Company Number: None

PATIENT
  Age: 42 Year
  Sex: Female
  Weight: 61.24 kg

DRUGS (1)
  1. CIPROFLOXACIN [Suspect]
     Indication: SINUSITIS
     Dosage: 2 PILLS TWICE DAILY TAKEN BY MOUTH
     Route: 048
     Dates: start: 20140222, end: 20140225

REACTIONS (10)
  - Vision blurred [None]
  - Muscle twitching [None]
  - Paraesthesia [None]
  - Anxiety [None]
  - Gait disturbance [None]
  - Tendon pain [None]
  - Arthralgia [None]
  - Musculoskeletal pain [None]
  - Arthropathy [None]
  - Arthralgia [None]
